FAERS Safety Report 20187018 (Version 1)
Quarter: 2021Q4

REPORT INFORMATION
  Report Type: Other
  Country: GB (occurrence: GB)
  Receive Date: 20211215
  Receipt Date: 20211215
  Transmission Date: 20220303
  Serious: Yes (Hospitalization, Other)
  Sender: FDA-Public Use
  Company Number: GB-DEXPHARM-20212023

PATIENT
  Age: 8 Decade
  Sex: Male

DRUGS (3)
  1. OMEPRAZOLE [Suspect]
     Active Substance: OMEPRAZOLE
     Dosage: 20MG THREE TIMES A DAY FOR MORE THAN FORTY YEARS
  2. FERROUS GLUCONATE [Concomitant]
     Active Substance: FERROUS GLUCONATE
     Indication: Asthenia
  3. Magnesium infusions [Concomitant]
     Indication: Hypomagnesaemia
     Dosage: PERIODIC TWICE WEEKLY 24 MMOL MAGNESIUM INFUSIONS.

REACTIONS (3)
  - Gastric mucosal hypertrophy [Recovering/Resolving]
  - Gastric polyps [Recovering/Resolving]
  - Hypomagnesaemia [Recovering/Resolving]
